FAERS Safety Report 7635707-6 (Version None)
Quarter: 2011Q3

REPORT INFORMATION
  Report Type: 
  Country: None (occurrence: None)
  Receive Date: 20110719
  Receipt Date: 20110708
  Transmission Date: 20111222
  Serious: Yes (Other)
  Sender: FDA-Public Use
  Company Number: 2011SP018903

PATIENT
  Sex: Female

DRUGS (1)
  1. IMPLANON [Suspect]
     Indication: CONTRACEPTION
     Dosage: 68 MG; ; SBDE
     Route: 059
     Dates: start: 20100222, end: 20110302

REACTIONS (5)
  - MYALGIA [None]
  - GRAND MAL CONVULSION [None]
  - HEADACHE [None]
  - CONFUSIONAL STATE [None]
  - MEMORY IMPAIRMENT [None]
